FAERS Safety Report 8719520 (Version 2)
Quarter: 2012Q4

REPORT INFORMATION
  Report Type: 
  Country: JP (occurrence: JP)
  Receive Date: 20120813
  Receipt Date: 20120920
  Transmission Date: 20130627
  Serious: Yes (Hospitalization, Other)
  Sender: FDA-Public Use
  Company Number: JP-JNJFOC-20120802915

PATIENT
  Age: 15 Year
  Sex: Male
  Weight: 46 kg

DRUGS (10)
  1. REMICADE [Suspect]
     Indication: CROHN^S DISEASE
     Dosage: 21st dose
     Route: 042
     Dates: start: 20120726
  2. REMICADE [Suspect]
     Indication: CROHN^S DISEASE
     Route: 042
     Dates: start: 20110528
  3. REMICADE [Suspect]
     Indication: CROHN^S DISEASE
     Route: 042
     Dates: start: 20100909
  4. REMICADE [Suspect]
     Indication: CROHN^S DISEASE
     Dosage: first infusion
     Route: 042
     Dates: start: 20100223
  5. SOLU MEDROL [Concomitant]
     Indication: PREMEDICATION
     Route: 065
     Dates: start: 20120726, end: 20120726
  6. ATARAX P [Concomitant]
     Indication: PREMEDICATION
     Route: 065
     Dates: start: 20120726, end: 20120726
  7. PENTASA [Concomitant]
     Indication: CROHN^S DISEASE
     Route: 048
     Dates: start: 20111020
  8. BIOFERMIN [Concomitant]
     Indication: CROHN^S DISEASE
     Route: 048
     Dates: start: 20110113
  9. ELENTAL [Concomitant]
     Indication: CROHN^S DISEASE
     Route: 048
     Dates: start: 20100722
  10. ISOTONIC SODIUM CHLORIDE [Concomitant]
     Indication: PREMEDICATION
     Route: 065
     Dates: start: 20120726, end: 20120726

REACTIONS (2)
  - Convulsion [Recovered/Resolved]
  - Infusion related reaction [Recovered/Resolved]
